FAERS Safety Report 6519613-6 (Version None)
Quarter: 2009Q4

REPORT INFORMATION
  Report Type: 
  Country: None (occurrence: None)
  Receive Date: 20091228
  Receipt Date: 20091221
  Transmission Date: 20100525
  Serious: Yes (Other)
  Sender: FDA-Public Use
  Company Number: US-KINGPHARMUSA00001-K200801401

PATIENT
  Sex: Male
  Weight: 101 kg

DRUGS (4)
  1. ALTACE [Suspect]
     Indication: HYPERTENSION
     Dosage: 10 MG, UNK
     Route: 048
     Dates: start: 20081007
  2. ALTACE [Suspect]
     Dosage: 5 MG, QD
     Route: 048
     Dates: end: 20081001
  3. AMLODIPINE [Concomitant]
     Indication: HYPERTENSION
     Dosage: 5 MG, UNK
     Route: 048
     Dates: start: 20080507
  4. ROSUVASTATIN [Concomitant]
     Indication: HYPERTENSION
     Dosage: 5 MG, UNK
     Route: 048
     Dates: start: 20081001

REACTIONS (3)
  - COUGH [None]
  - PERIORBITAL HAEMATOMA [None]
  - STEVENS-JOHNSON SYNDROME [None]
